FAERS Safety Report 8591144-1 (Version None)
Quarter: 2012Q3

REPORT INFORMATION
  Report Type: 
  Country: None (occurrence: None)
  Receive Date: 20120813
  Receipt Date: 20120807
  Transmission Date: 20120928
  Serious: Yes (Hospitalization, Other)
  Sender: FDA-Public Use
  Company Number: US-JNJFOC-20120214028

PATIENT
  Sex: Male
  Weight: 70.31 kg

DRUGS (23)
  1. VALIUM [Concomitant]
     Indication: MIGRAINE
     Dosage: 20 MG ONCE DAILY
     Route: 048
     Dates: start: 20050101, end: 20120118
  2. PANTOPRAZOLE [Concomitant]
     Indication: DYSPEPSIA
     Dosage: 40 MG ONCE DAILY
     Route: 048
     Dates: end: 20120118
  3. LIPITOR [Concomitant]
     Indication: BLOOD PRESSURE
     Dosage: ONCE DAILY
     Route: 048
     Dates: start: 20050101, end: 20120118
  4. EXCEDRIN NOS [Concomitant]
     Indication: HEADACHE
     Route: 065
     Dates: start: 19950101
  5. NUCYNTA ER [Suspect]
     Dosage: 1 PER DAY
     Route: 048
  6. REMERON [Concomitant]
     Indication: DEPRESSION
     Dosage: ONCE DAILY
     Route: 048
     Dates: end: 20120118
  7. UNKNOWN MEDICATION [Concomitant]
     Route: 065
  8. FLUOXETINE HCL [Concomitant]
     Indication: DEPRESSION
     Dosage: 20 MG ONCE DAILY
     Route: 048
     Dates: start: 20020101, end: 20120118
  9. EFFEXOR XR [Concomitant]
     Indication: DEPRESSION
     Dosage: 300 MG ONCE DAILY
     Route: 048
     Dates: start: 20060101, end: 20120118
  10. DIOVAN [Concomitant]
     Indication: HYPERTENSION
     Dosage: ONCE DAILY
     Route: 048
     Dates: end: 20120118
  11. ZOCOR [Concomitant]
     Route: 065
  12. NUCYNTA ER [Suspect]
     Dosage: 1 PER DAY
     Route: 048
  13. DILTIAZEM [Concomitant]
     Indication: HYPERTENSION
     Dosage: ONCE DAILY
     Route: 048
     Dates: end: 20120118
  14. DEPAKOTE [Concomitant]
     Indication: MIGRAINE
     Dosage: 500 MG ONCE DAILY
     Route: 048
     Dates: end: 20120118
  15. TOPAMAX [Concomitant]
     Indication: HEADACHE
     Dosage: 100 MG ONCE DAILY
     Route: 048
     Dates: start: 20060101, end: 20120118
  16. BACLOFEN [Concomitant]
     Indication: MIGRAINE
     Dosage: 3 TIMES DAILY
     Route: 048
     Dates: start: 20060101, end: 20120118
  17. LIPITOR [Concomitant]
     Indication: BLOOD CHOLESTEROL INCREASED
     Dosage: ONCE DAILY
     Route: 048
     Dates: start: 20050101, end: 20120118
  18. NUCYNTA ER [Suspect]
     Indication: BACK PAIN
     Route: 048
     Dates: start: 20120112, end: 20120118
  19. ZYPREXA [Concomitant]
     Route: 065
  20. TOPAMAX [Concomitant]
     Indication: MIGRAINE PROPHYLAXIS
     Dosage: 100 MG ONCE DAILY
     Route: 048
     Dates: start: 20060101, end: 20120118
  21. NUCYNTA ER [Suspect]
     Indication: ARTHRALGIA
     Route: 048
     Dates: start: 20120112, end: 20120118
  22. BACLOFEN [Concomitant]
     Indication: HEADACHE
     Dosage: 3 TIMES DAILY
     Route: 048
     Dates: start: 20060101, end: 20120118
  23. DOXAZOSIN MESYLATE [Concomitant]
     Indication: HYPERTENSION
     Dosage: 8 MG ONCE DAILY
     Route: 048
     Dates: end: 20120118

REACTIONS (7)
  - HAEMOGLOBIN DECREASED [None]
  - INCORRECT DOSE ADMINISTERED [None]
  - LOSS OF CONSCIOUSNESS [None]
  - SEROTONIN SYNDROME [None]
  - PNEUMONIA ASPIRATION [None]
  - RHABDOMYOLYSIS [None]
  - RENAL FAILURE ACUTE [None]
